FAERS Safety Report 8339603-0 (Version None)
Quarter: 2012Q2

REPORT INFORMATION
  Report Type: 
  Country: None (occurrence: None)
  Receive Date: 20120507
  Receipt Date: 20120501
  Transmission Date: 20120825
  Serious: No
  Sender: FDA-Public Use
  Company Number: US-PFIZER INC-2012107780

PATIENT
  Sex: Female

DRUGS (2)
  1. SUTENT [Suspect]
     Dosage: UNK
  2. CAMPTOSAR [Suspect]
     Indication: PANCREATIC CARCINOMA
     Dosage: 280 MG, EVERY 2 WEEKS
     Dates: start: 20120330

REACTIONS (2)
  - PANCREATIC CARCINOMA [None]
  - DISEASE PROGRESSION [None]
